FAERS Safety Report 17061991 (Version 1)
Quarter: 2019Q4

REPORT INFORMATION
  Report Type: Spontaneous
  Country: GR (occurrence: GR)
  Receive Date: 20191121
  Receipt Date: 20191121
  Transmission Date: 20200122
  Serious: Yes (Death, Other)
  Sender: FDA-Public Use
  Company Number: GR-BAXTER-2019BAX019981

PATIENT
  Age: 79 Year
  Sex: Female

DRUGS (8)
  1. VELCADE [Suspect]
     Active Substance: BORTEZOMIB
     Indication: PRODUCT USED FOR UNKNOWN INDICATION
     Route: 065
  2. LENALIDOMIDE [Suspect]
     Active Substance: LENALIDOMIDE
     Indication: PRODUCT USED FOR UNKNOWN INDICATION
     Route: 065
  3. DOXIL [Suspect]
     Active Substance: DOXORUBICIN HYDROCHLORIDE
     Indication: PRODUCT USED FOR UNKNOWN INDICATION
     Dosage: UNKNOWN DOSAGE
     Route: 065
  4. POMALIDOMIDE [Suspect]
     Active Substance: POMALIDOMIDE
     Indication: PRODUCT USED FOR UNKNOWN INDICATION
     Route: 065
  5. PANOBINOSTAT [Suspect]
     Active Substance: PANOBINOSTAT
     Indication: PRODUCT USED FOR UNKNOWN INDICATION
     Dosage: UNKNOWN DOSAGE
     Route: 065
  6. DEXAMETHASONE. [Suspect]
     Active Substance: DEXAMETHASONE
     Indication: PRODUCT USED FOR UNKNOWN INDICATION
     Route: 065
  7. DARZALEX [Suspect]
     Active Substance: DARATUMUMAB
     Indication: PRODUCT USED FOR UNKNOWN INDICATION
     Route: 042
  8. NINLARO [Suspect]
     Active Substance: IXAZOMIB CITRATE
     Indication: PRODUCT USED FOR UNKNOWN INDICATION
     Route: 065

REACTIONS (4)
  - Plasma cell myeloma [Not Recovered/Not Resolved]
  - Drug ineffective [Not Recovered/Not Resolved]
  - Respiratory tract infection [Fatal]
  - Plasmacytoma [Not Recovered/Not Resolved]
